FAERS Safety Report 9077861 (Version 1)
Quarter: 2013Q1

REPORT INFORMATION
  Report Type: Report from Study
  Country: US (occurrence: US)
  Receive Date: 20130130
  Receipt Date: 20130130
  Transmission Date: 20140127
  Serious: No
  Sender: FDA-Public Use
  Company Number: US-ABBOTT-12P-163-0958774-00

PATIENT
  Age: 57 Year
  Sex: Female

DRUGS (12)
  1. HUMIRA 40 MG/0.8 ML PEN [Suspect]
     Indication: UVEITIS
     Dates: start: 20110301
  2. IBUPROFEN [Concomitant]
     Indication: ARTHRITIS
     Route: 048
  3. GABAPENTIN [Concomitant]
     Indication: INTERVERTEBRAL DISC DEGENERATION
     Route: 048
  4. METFORMIN [Concomitant]
     Indication: DIABETES MELLITUS
     Route: 048
  5. CITALOPRAM [Concomitant]
     Indication: DEPRESSION
     Dosage: DAILY
     Route: 048
  6. ATENOLOL [Concomitant]
     Indication: HEADACHE
     Dosage: DAILY
     Route: 048
  7. METHOTREXATE [Concomitant]
     Indication: ARTHRITIS
     Route: 048
  8. LORATADINE [Concomitant]
     Indication: HYPERSENSITIVITY
     Dosage: DAILY
     Route: 048
  9. OMEPRAZOLE [Concomitant]
     Indication: GASTROOESOPHAGEAL REFLUX DISEASE
     Route: 048
  10. FOLIC ACID [Concomitant]
     Indication: PRODUCT USED FOR UNKNOWN INDICATION
     Dosage: DAILY
     Route: 048
  11. METHADONE [Concomitant]
     Indication: PAIN
     Dosage: 6 PILLS DAILY
  12. LORAZEPAM [Concomitant]
     Indication: STRESS
     Dosage: 4 PILLS
     Route: 048

REACTIONS (3)
  - Incorrect dose administered [Recovered/Resolved]
  - Injection site haemorrhage [Recovered/Resolved]
  - Injection site pain [Recovered/Resolved]
